FAERS Safety Report 8581863-5 (Version None)
Quarter: 2012Q3

REPORT INFORMATION
  Report Type: 
  Country: None (occurrence: None)
  Receive Date: 20120809
  Receipt Date: 20120807
  Transmission Date: 20120928
  Serious: Yes (Other)
  Sender: FDA-Public Use
  Company Number: US-PFIZER INC-2012105181

PATIENT
  Age: 19 Year
  Sex: Male

DRUGS (9)
  1. CHANTIX [Suspect]
     Indication: SMOKING CESSATION THERAPY
     Dosage: UNK
     Dates: start: 20070501, end: 20070701
  2. LITHIUM [Concomitant]
     Indication: BIPOLAR DISORDER
  3. ABILIFY [Concomitant]
     Indication: ANXIETY
     Dosage: UNK
     Dates: start: 20060101, end: 20080101
  4. LITHIUM [Concomitant]
     Indication: DEPRESSION
  5. ZYPREXA [Concomitant]
     Indication: DEPRESSION
  6. ABILIFY [Concomitant]
     Indication: DEPRESSION
  7. LITHIUM [Concomitant]
     Indication: ANXIETY
     Dosage: UNK
     Dates: end: 20080101
  8. ZYPREXA [Concomitant]
     Indication: ANXIETY
     Dosage: UNK
     Dates: end: 20080101
  9. LITHIUM [Concomitant]
     Indication: SCHIZOPHRENIA

REACTIONS (7)
  - AMNESIA [None]
  - ANGER [None]
  - SUICIDAL BEHAVIOUR [None]
  - ABNORMAL DREAMS [None]
  - DEPRESSION [None]
  - AGGRESSION [None]
  - ANXIETY [None]
